FAERS Safety Report 13026394 (Version 1)
Quarter: 2016Q4

REPORT INFORMATION
  Report Type: Spontaneous
  Country: US (occurrence: US)
  Receive Date: 20161214
  Receipt Date: 20161214
  Transmission Date: 20170207
  Serious: No
  Sender: FDA-Public Use
  Company Number: US-APOTEX-2016AP014692

PATIENT
  Sex: Female

DRUGS (1)
  1. FENTANYL. [Suspect]
     Active Substance: FENTANYL
     Indication: PAIN
     Dosage: UNK (5 PATCH) (1 IN 72 HOURS)
     Route: 062

REACTIONS (5)
  - Urine odour abnormal [Unknown]
  - Influenza like illness [Unknown]
  - Product adhesion issue [Unknown]
  - Dysgeusia [Unknown]
  - Drug ineffective [Unknown]
